FAERS Safety Report 17257067 (Version 1)
Quarter: 2020Q1

REPORT INFORMATION
  Report Type: Report from Study
  Country: US (occurrence: US)
  Receive Date: 20200110
  Receipt Date: 20200110
  Transmission Date: 20200409
  Serious: Yes (Other)
  Sender: FDA-Public Use
  Company Number: US-ROCHE-2518290

PATIENT
  Sex: Male

DRUGS (1)
  1. OCREVUS [Suspect]
     Active Substance: OCRELIZUMAB
     Indication: RELAPSING MULTIPLE SCLEROSIS
     Dosage: ONGOING-YES?DATES OF TREATMENT: 23/DEC/2018, 09/JAN/2019 AND 12/JUL/2019.
     Route: 042
     Dates: start: 20181226

REACTIONS (1)
  - Herpes virus infection [Not Recovered/Not Resolved]
